FAERS Safety Report 7941471-3 (Version None)
Quarter: 2011Q4

REPORT INFORMATION
  Report Type: 
  Country: None (occurrence: None)
  Receive Date: 20111122
  Receipt Date: 20111122
  Transmission Date: 20120403
  Serious: No
  Sender: FDA-Public Use
  Company Number: None

PATIENT
  Sex: Male
  Weight: 62.2 kg

DRUGS (16)
  1. MERCAPTOPURINE [Suspect]
     Dosage: 2850 MG
     Dates: start: 20110906, end: 20110919
  2. MERCAPTOPURINE [Suspect]
     Dosage: 2850 MG
     Dates: start: 20110808, end: 20110821
  3. CYTARABINE [Suspect]
     Dosage: 2080 MG
     Dates: start: 20110913, end: 20110916
  4. CYTARABINE [Suspect]
     Dosage: 2080 MG
     Dates: start: 20110808, end: 20110811
  5. CYTARABINE [Suspect]
     Dosage: 2080 MG
     Dates: start: 20110815, end: 20110818
  6. CYTARABINE [Suspect]
     Dosage: 2080 MG
     Dates: start: 20110906, end: 20110909
  7. CYCLOPHOSPHAMIDE [Suspect]
     Dosage: 3500 MG
     Dates: start: 20110906
  8. CYCLOPHOSPHAMIDE [Suspect]
     Dosage: 3500 MG
     Dates: start: 20110808
  9. VINCRISTINE SULFATE [Suspect]
     Dosage: 6 MG
     Dates: start: 20110829
  10. VINCRISTINE SULFATE [Suspect]
     Dosage: 6 MG
     Dates: start: 20110920
  11. VINCRISTINE SULFATE [Suspect]
     Dosage: 6 MG
     Dates: start: 20110822
  12. ONCASPAR [Suspect]
     Dosage: 8700 IU
     Dates: start: 20110822
  13. ONCASPAR [Suspect]
     Dosage: 8700 IU
     Dates: start: 20110920
  14. METHOTREXATE [Suspect]
     Dosage: 45 MG
     Dates: start: 20110822
  15. METHOTREXATE [Suspect]
     Dosage: 45 MG
     Dates: start: 20110829
  16. METHOTREXATE [Suspect]
     Dosage: 45 MG
     Dates: start: 20110815

REACTIONS (4)
  - BLOOD CHOLESTEROL INCREASED [None]
  - DRUG DOSE OMISSION [None]
  - BLOOD TRIGLYCERIDES INCREASED [None]
  - NEUROPATHY PERIPHERAL [None]
